FAERS Safety Report 6746066-5 (Version None)
Quarter: 2010Q2

REPORT INFORMATION
  Report Type: 
  Country: None (occurrence: None)
  Receive Date: 20100528
  Receipt Date: 20100513
  Transmission Date: 20101027
  Serious: Yes (Other)
  Sender: FDA-Public Use
  Company Number: AU-NOVOPROD-309224

PATIENT
  Sex: Female
  Weight: 3.82 kg

DRUGS (2)
  1. PROTAPHANE  INNOLET [Suspect]
     Indication: DRUG EXPOSURE DURING PREGNANCY
     Dosage: 2 IU, QD
     Route: 015
     Dates: start: 20100406, end: 20100408
  2. HUMALOG [Concomitant]
     Indication: DRUG EXPOSURE DURING PREGNANCY
     Dosage: 8 IU, QD
     Route: 015
     Dates: start: 20100406, end: 20100502

REACTIONS (1)
  - HYPERBILIRUBINAEMIA NEONATAL [None]
